FAERS Safety Report 12162827 (Version 1)
Quarter: 2016Q1

REPORT INFORMATION
  Report Type: Spontaneous
  Country: US (occurrence: US)
  Receive Date: 20160309
  Receipt Date: 20160309
  Transmission Date: 20160526
  Serious: No
  Sender: FDA-Public Use
  Company Number: US-BAYER-2016-046739

PATIENT
  Age: 4 Year
  Sex: Female
  Weight: 19.48 kg

DRUGS (3)
  1. ROBITUSSIN DM [Concomitant]
     Active Substance: DEXTROMETHORPHAN HYDROBROMIDE\GUAIFENESIN
  2. CHILDREN CLARITIN ALLERGY [Suspect]
     Active Substance: LORATADINE
     Indication: SEASONAL ALLERGY
     Dosage: 1 DF, PRN
     Route: 048
     Dates: start: 2015
  3. PROBIOTICA [Concomitant]
     Active Substance: PROBIOTICS NOS

REACTIONS (2)
  - Asthma [Not Recovered/Not Resolved]
  - Incorrect dose administered [None]
